FAERS Safety Report 18632749 (Version 1)
Quarter: 2020Q4

REPORT INFORMATION
  Report Type: Other
  Country: KR (occurrence: KR)
  Receive Date: 20201218
  Receipt Date: 20201218
  Transmission Date: 20210114
  Serious: Yes (Hospitalization)
  Sender: FDA-Public Use
  Company Number: KR-ROCHE-2622639

PATIENT
  Age: 67 Year
  Sex: Female

DRUGS (19)
  1. NEOPLATIN (SOUTH KOREA) [Concomitant]
     Dates: start: 20200228, end: 20200612
  2. AMODIPIN [Concomitant]
     Route: 048
     Dates: start: 20200229
  3. LONQUEX [Concomitant]
     Active Substance: LIPEGFILGRASTIM
     Route: 058
     Dates: start: 20200229, end: 20200613
  4. SANCUSO [Concomitant]
     Active Substance: GRANISETRON
     Route: 042
     Dates: start: 20200227, end: 20200612
  5. DIOVAN [Concomitant]
     Active Substance: VALSARTAN
     Indication: HYPERTENSION
     Route: 048
     Dates: start: 20200226
  6. LOPERAMIDE [Concomitant]
     Active Substance: LOPERAMIDE
     Route: 048
     Dates: start: 20200229, end: 20200612
  7. DEXAMETHASONE. [Concomitant]
     Active Substance: DEXAMETHASONE
     Route: 042
     Dates: start: 20200228, end: 20200612
  8. TANTUM [Concomitant]
     Active Substance: BENZYDAMINE HYDROCHLORIDE
     Dates: start: 20200228, end: 20200612
  9. DOCETAXEL. [Suspect]
     Active Substance: DOCETAXEL
     Indication: BREAST CANCER
     Route: 042
     Dates: start: 20200228, end: 20200613
  10. EMEND [Concomitant]
     Active Substance: APREPITANT
     Route: 048
     Dates: start: 20200228, end: 20200612
  11. PALSERON [Concomitant]
     Route: 042
     Dates: start: 20200228, end: 20200612
  12. NASERON [Concomitant]
     Active Substance: RAMOSETRON HYDROCHLORIDE
     Route: 048
     Dates: start: 20200228, end: 20200612
  13. CODAEWON FORTE [Concomitant]
     Route: 048
     Dates: start: 20200502, end: 20200502
  14. PERTUZUMAB. [Suspect]
     Active Substance: PERTUZUMAB
     Indication: BREAST CANCER
     Route: 042
     Dates: start: 20200227
  15. PENIRAMIN [Concomitant]
     Route: 042
     Dates: start: 20200227, end: 20200612
  16. NEURONTIN [Concomitant]
     Active Substance: GABAPENTIN
     Route: 048
     Dates: start: 20200228, end: 20200612
  17. PERTUZUMAB. [Suspect]
     Active Substance: PERTUZUMAB
     Dosage: SUBSEQUENTLY, SHE RECEIVED PERTUZUMAB ON 20/MAR/2020, 10/APR/2020, 30/APR/2020, 22/MAY/2020, 12/JUN/
     Route: 042
     Dates: start: 20200320
  18. SUSPEN ER [Concomitant]
     Route: 048
     Dates: start: 20200228, end: 20200612
  19. HERZUMA [Suspect]
     Active Substance: TRASTUZUMAB-PKRB
     Indication: BREAST CANCER
     Route: 042
     Dates: start: 20200227, end: 20200612

REACTIONS (7)
  - Anaemia [Not Recovered/Not Resolved]
  - Vomiting [Recovered/Resolved]
  - Diarrhoea [Recovered/Resolved]
  - Haematochezia [Recovered/Resolved]
  - Stomatitis [Recovered/Resolved]
  - Alopecia [Recovering/Resolving]
  - Oedema peripheral [Recovered/Resolved]

NARRATIVE: CASE EVENT DATE: 20200228
